FAERS Safety Report 13591610 (Version 2)
Quarter: 2017Q3

REPORT INFORMATION
  Report Type: Spontaneous
  Country: US (occurrence: US)
  Receive Date: 20170530
  Receipt Date: 20170810
  Transmission Date: 20171127
  Serious: Yes (Other)
  Sender: FDA-Public Use
  Company Number: US-GLAXOSMITHKLINE-US2017079753

PATIENT
  Sex: Female
  Weight: 62.59 kg

DRUGS (5)
  1. BENLYSTA [Suspect]
     Active Substance: BELIMUMAB
     Indication: SYSTEMIC LUPUS ERYTHEMATOSUS
     Dosage: UNK
     Route: 042
     Dates: start: 201603
  2. PLAQUENIL [Concomitant]
     Active Substance: HYDROXYCHLOROQUINE SULFATE
  3. ASPIRIN (BABY) [Concomitant]
     Active Substance: ASPIRIN
  4. PREDNISONE. [Concomitant]
     Active Substance: PREDNISONE
     Dosage: UNK
  5. THYROID [Concomitant]
     Active Substance: LEVOTHYROXINE\LIOTHYRONINE

REACTIONS (1)
  - Wound infection [Unknown]
